FAERS Safety Report 4300522-8 (Version None)
Quarter: 2004Q1

REPORT INFORMATION
  Report Type: 
  Country: None (occurrence: None)
  Receive Date: 20040220
  Receipt Date: 20031106
  Transmission Date: 20041129
  Serious: Yes (Hospitalization, Other)
  Sender: FDA-Public Use
  Company Number: PHBS2003JP12481

PATIENT
  Age: 60 Year
  Sex: Female
  Weight: 64 kg

DRUGS (22)
  1. GLEEVEC [Suspect]
     Indication: GASTROINTESTINAL STROMAL TUMOUR
     Dosage: 300 MG/D
     Route: 048
     Dates: start: 20030607, end: 20030608
  2. GLEEVEC [Suspect]
     Dosage: 400 MG/D
     Route: 048
     Dates: start: 20030610, end: 20030625
  3. GLEEVEC [Suspect]
     Dosage: 100 MG/D
     Route: 048
     Dates: start: 20030707, end: 20030713
  4. GLEEVEC [Suspect]
     Dosage: 200 MG/D
     Route: 048
     Dates: start: 20030714, end: 20030720
  5. GLEEVEC [Suspect]
     Dosage: 300 MG/D
     Route: 048
     Dates: start: 20030721, end: 20030730
  6. GLEEVEC [Suspect]
     Dosage: 400 MG/D
     Route: 048
     Dates: start: 20030731, end: 20030901
  7. GLEEVEC [Suspect]
     Dosage: 600 MG, QD
     Route: 048
     Dates: start: 20030523, end: 20030606
  8. SOSEGON [Concomitant]
     Dosage: 75 MG/D
     Route: 048
     Dates: start: 20030514
  9. NAUZELIN [Concomitant]
     Dosage: 30 MG/D
     Route: 048
     Dates: start: 20030530, end: 20030701
  10. GASTER D [Concomitant]
     Dosage: 40 MG/D
     Route: 048
     Dates: start: 20030530, end: 20030701
  11. PREDNISOLONE [Suspect]
     Dosage: 20 MG/D
     Route: 048
     Dates: start: 20030618
  12. PREDNISOLONE [Suspect]
     Dosage: 30 MG/D
     Route: 048
     Dates: start: 20030721
  13. PREDNISOLONE [Suspect]
     Dosage: 45 MG/D
     Route: 048
     Dates: start: 20030724
  14. PREDNISOLONE [Suspect]
     Dosage: 40 MG/D
     Dates: start: 20030729
  15. PREDNISOLONE [Suspect]
     Dosage: 30 MG/D
     Route: 048
     Dates: start: 20030823
  16. PREDNISOLONE [Suspect]
     Dosage: 60 MG/D
     Route: 048
     Dates: start: 20030905
  17. DIFLUCAN [Suspect]
     Route: 048
  18. DIFLUCAN [Suspect]
     Dosage: 45 MG/D
     Route: 048
     Dates: start: 20030724
  19. DIFLUCAN [Suspect]
     Dosage: 100 MG/D
     Route: 048
     Dates: start: 20030825, end: 20030922
  20. BAKTAR [Suspect]
     Dosage: 2 DF/D
     Route: 048
     Dates: start: 20030902, end: 20030922
  21. ISCOTIN [Suspect]
     Dosage: 100 MG/D
     Route: 048
     Dates: start: 20030902, end: 20030922
  22. FUNGIZONE [Concomitant]
     Route: 048
     Dates: start: 20030822, end: 20030825

REACTIONS (16)
  - AGRANULOCYTOSIS [None]
  - ANOREXIA [None]
  - BLOOD BETA-D-GLUCAN INCREASED [None]
  - COUGH [None]
  - DYSPNOEA [None]
  - EXANTHEM [None]
  - FACE OEDEMA [None]
  - HYPOAESTHESIA ORAL [None]
  - HYPOXIA [None]
  - INTERSTITIAL LUNG DISEASE [None]
  - MALAISE [None]
  - NAUSEA [None]
  - OEDEMA PERIPHERAL [None]
  - PYREXIA [None]
  - RASH [None]
  - VOMITING [None]
